FAERS Safety Report 9454371 (Version 2)
Quarter: 2014Q2

REPORT INFORMATION
  Report Type: Spontaneous
  Country: FR (occurrence: FR)
  Receive Date: 20130812
  Receipt Date: 20140527
  Transmission Date: 20141212
  Serious: Yes (Hospitalization)
  Sender: FDA-Public Use
  Company Number: FR-ROCHE-1260199

PATIENT
  Age: 53 Year
  Sex: Female

DRUGS (13)
  1. ROCEPHIN [Suspect]
     Indication: PNEUMONIA
     Dosage: DOSE: 2 GM AFTER DIALYSIS
     Route: 042
     Dates: start: 20130718, end: 20130723
  2. ROCEPHIN [Suspect]
     Dosage: DOSE: 2 GM AFTER DIALYSIS
     Route: 042
  3. ROVAMYCINE [Suspect]
     Indication: PNEUMONIA
     Route: 042
     Dates: start: 20130718, end: 20130724
  4. DEPAKINE [Suspect]
     Indication: EPILEPSY
     Route: 048
     Dates: start: 20130321, end: 20130723
  5. URBANYL [Suspect]
     Indication: EPILEPSY
     Route: 048
     Dates: start: 20130321, end: 20130723
  6. CELLCEPT [Concomitant]
     Indication: ANTIPHOSPHOLIPID SYNDROME
     Route: 065
     Dates: end: 20130723
  7. PREVISCAN (FRANCE) [Concomitant]
     Indication: ANTIPHOSPHOLIPID SYNDROME
     Route: 065
     Dates: end: 20130723
  8. BACTRIM FORTE [Concomitant]
     Route: 065
     Dates: end: 20130723
  9. KAYEXALATE [Concomitant]
  10. RENAGEL [Concomitant]
     Route: 065
     Dates: end: 20130723
  11. TAHOR [Concomitant]
     Route: 065
     Dates: end: 20130723
  12. INEXIUM [Concomitant]
     Indication: ULCER
     Route: 065
     Dates: end: 20130723
  13. DELURSAN [Concomitant]
     Indication: CHOLESTASIS
     Route: 065
     Dates: end: 20130723

REACTIONS (1)
  - Hepatitis acute [Recovered/Resolved]
